FAERS Safety Report 9816144 (Version 1)
Quarter: 2014Q1

REPORT INFORMATION
  Report Type: Spontaneous
  Country: US (occurrence: US)
  Receive Date: 20140114
  Receipt Date: 20140114
  Transmission Date: 20141002
  Serious: Yes (Death)
  Sender: FDA-Public Use
  Company Number: US-PFIZER INC-2014006852

PATIENT
  Age: 47 Year
  Sex: Female

DRUGS (9)
  1. ALPRAZOLAM [Suspect]
     Dosage: UNK
  2. VENLAFAXINE HCL [Suspect]
     Dosage: UNK
  3. METHAMPHETAMINE [Suspect]
     Dosage: UNK
  4. ACETAMINOPHEN/ HYDROCODONE [Suspect]
     Dosage: UNK
  5. CITALOPRAM [Suspect]
     Dosage: UNK
  6. BUPROPION [Suspect]
     Dosage: UNK
  7. CARBAMAZEPINE [Suspect]
     Dosage: UNK
  8. DOXYLAMINE [Suspect]
     Dosage: UNK
  9. TRAMADOL [Suspect]
     Dosage: UNK

REACTIONS (1)
  - Death [Fatal]
